FAERS Safety Report 5223665-3 (Version None)
Quarter: 2007Q1

REPORT INFORMATION
  Report Type: 
  Country: None (occurrence: None)
  Receive Date: 20070130
  Receipt Date: 20070117
  Transmission Date: 20070707
  Serious: Yes (Hospitalization)
  Sender: FDA-Public Use
  Company Number: HQWYE164129AUG05

PATIENT
  Sex: Male
  Weight: 63.56 kg

DRUGS (18)
  1. RAPAMUNE [Suspect]
     Indication: PROPHYLAXIS AGAINST TRANSPLANT REJECTION
     Dosage: UNKNOWN
     Route: 048
     Dates: start: 20050418, end: 20050817
  2. PROGRAF [Suspect]
     Indication: PROPHYLAXIS AGAINST TRANSPLANT REJECTION
     Route: 065
     Dates: end: 20050801
  3. PROGRAF [Suspect]
     Route: 065
     Dates: start: 20050801
  4. PREDNISONE [Suspect]
     Indication: PROPHYLAXIS AGAINST TRANSPLANT REJECTION
     Route: 048
     Dates: end: 20050801
  5. PREDNISONE [Suspect]
     Route: 048
     Dates: start: 20050801
  6. LEFLUNOMIDE [Suspect]
     Route: 065
     Dates: end: 20050801
  7. NORVASC [Concomitant]
     Route: 048
  8. ARTANE [Concomitant]
     Route: 048
     Dates: end: 20050801
  9. VASOTEC [Concomitant]
     Dosage: ^10 MG ONCE A DAY AND 5 MG ONCE IN AFTERNOON^
     Route: 048
  10. NOVOLOG [Concomitant]
     Dosage: 12 UNIT EVERY 1 DAY
     Route: 065
  11. ACETYLSALICYLIC ACID [Concomitant]
     Dosage: 81 MG
     Route: 065
  12. ROCALTROL [Concomitant]
     Route: 065
     Dates: end: 20050801
  13. ROCALTROL [Concomitant]
     Route: 048
     Dates: start: 20050801
  14. LOPRESSOR [Concomitant]
     Route: 065
     Dates: end: 20050101
  15. BACTRIM DS [Concomitant]
     Route: 048
     Dates: end: 20050801
  16. BACTRIM DS [Concomitant]
     Route: 048
     Dates: start: 20050801
  17. ZENAPAX [Suspect]
     Indication: PROPHYLAXIS AGAINST TRANSPLANT REJECTION
     Dosage: UNKNOWN
     Route: 065
  18. LIPITOR [Concomitant]
     Route: 048

REACTIONS (1)
  - TRANSPLANT REJECTION [None]
